FAERS Safety Report 7328329 (Version 6)
Quarter: 2013Q2

REPORT INFORMATION
  Report Type: Spontaneous
  Country: US (occurrence: US)
  Receive Date: 20100323
  Receipt Date: 20130513
  Transmission Date: 20140414
  Serious: Yes (Hospitalization)
  Sender: FDA-Public Use
  Company Number: US-BAYER-201016882NA

PATIENT
  Age: 40 Year
  Sex: Female
  Weight: 100 kg

DRUGS (6)
  1. YAZ [Suspect]
     Indication: PRODUCT USED FOR UNKNOWN INDICATION
     Route: 048
     Dates: start: 200709, end: 20071015
  2. MOTRIN [Concomitant]
     Dosage: 20 PLUS YEARS
  3. NSAID^S [Concomitant]
     Dosage: 20 PLUS YEARS
  4. LISINOPRIL [Concomitant]
     Route: 048
  5. NORVASC [Concomitant]
     Route: 048
  6. METRONIDAZOLE [Concomitant]
     Dosage: 0.75%
     Route: 067

REACTIONS (8)
  - Pulmonary embolism [Unknown]
  - Dyspnoea exertional [Unknown]
  - Chest pain [Unknown]
  - Chest discomfort [Unknown]
  - Deep vein thrombosis [Unknown]
  - Pain in extremity [None]
  - Deep vein thrombosis [None]
  - Thrombophlebitis superficial [None]
